FAERS Safety Report 9014206 (Version 2)
Quarter: 2013Q1

REPORT INFORMATION
  Report Type: Spontaneous
  Country: CO (occurrence: CO)
  Receive Date: 20130115
  Receipt Date: 20130129
  Transmission Date: 20140127
  Serious: Yes (Other)
  Sender: FDA-Public Use
  Company Number: CO-VERTEX PHARMACEUTICALS INC.-2012-026147

PATIENT
  Age: 59 Year
  Sex: Female

DRUGS (7)
  1. INCIVO [Suspect]
     Indication: HEPATITIS C
     Dosage: DOSAGE FORM: TABLET
     Route: 048
     Dates: start: 20121123
  2. RIBAVIRIN [Concomitant]
     Indication: PRODUCT USED FOR UNKNOWN INDICATION
     Dosage: UNK
     Route: 065
  3. RIBAVIRIN [Concomitant]
     Dosage: DOSAGE FORM: UNKNOWN
  4. INTERFERON ALFA [Concomitant]
     Indication: PRODUCT USED FOR UNKNOWN INDICATION
     Dosage: UNK
     Route: 065
  5. INTERFERON ALFA [Concomitant]
     Dosage: DOSAGE FORM: UNKNOWN
  6. DANAZOL [Concomitant]
     Indication: PRODUCT USED FOR UNKNOWN INDICATION
     Dosage: UNK
     Route: 065
  7. DANAZOL [Concomitant]
     Dosage: DOSAGE FORM: UNKNOWN

REACTIONS (5)
  - Platelet count increased [Unknown]
  - Thrombocytopenia [Unknown]
  - Rash vesicular [Unknown]
  - Ecchymosis [Unknown]
  - Epistaxis [Unknown]
